FAERS Safety Report 9520119 (Version 1)
Quarter: 2013Q1

REPORT INFORMATION
  Report Type: Spontaneous
  Country: US (occurrence: None)
  Receive Date: 20130305
  Receipt Date: 20130305
  Transmission Date: 20140127
  Serious: Yes (Other)
  Sender: FDA-Public Use
  Company Number: 163-21880-12010835

PATIENT
  Age: 56 Year
  Sex: Female
  Weight: 63.5 kg

DRUGS (15)
  1. REVLIMID (LENALIDOMIDE) (CAPSULES) [Suspect]
     Indication: PLASMA CELL MYELOMA
     Dosage: DAILY ON DAYS 1-21 OF 28 DAY CYCLE
     Route: 048
     Dates: start: 20111216
  2. FENTANYL (FENTANYL) (POULTICE OR PATCH) [Concomitant]
  3. DEXAMETHASONE (DEXAMETHASONE) [Concomitant]
  4. ASA (ACETYLSALICYLIC ACID) [Concomitant]
  5. HYDROCODONE (HYDROCODONE) [Concomitant]
  6. GABAPENTIN(GABAPENTIN) [Concomitant]
  7. POTASSIUM (POTASSIUM) [Concomitant]
  8. LISINOPRIL/ HCTZ (PRINZIDE) [Concomitant]
  9. CLONIDINE (CLONIDINE) [Concomitant]
  10. MORPHINE ER (MORPHINE) [Concomitant]
  11. SERTRALINE (SERTRALINE) [Concomitant]
  12. OMEPRAZOLE (OMEPRAZOLE) [Concomitant]
  13. HYDROXYZINE (HYDROXYZINE) [Concomitant]
  14. FLUTICASONE (FLUTICASONE) [Concomitant]
  15. METOCLOPRAMIDE (METOCLOPRAMIDE) [Concomitant]

REACTIONS (2)
  - Syncope [None]
  - Blood creatinine increased [None]
